FAERS Safety Report 24694297 (Version 1)
Quarter: 2024Q4

REPORT INFORMATION
  Report Type: Spontaneous
  Country: CN (occurrence: CN)
  Receive Date: 20241204
  Receipt Date: 20241204
  Transmission Date: 20250115
  Serious: Yes (Other)
  Sender: SANOFI AVENTIS
  Company Number: CN-SA-2024SA351493

PATIENT
  Age: 49 Year
  Sex: Female
  Weight: 63 kg

DRUGS (3)
  1. ANTI-THYMOCYTE GLOBULIN (RABBIT) NOS [Suspect]
     Active Substance: LAPINE T-LYMPHOCYTE IMMUNE GLOBULIN
     Indication: Prophylaxis against transplant rejection
     Dosage: 100 MG, 1X
     Route: 041
     Dates: start: 20241012, end: 20241014
  2. BUSULFAN [Concomitant]
     Active Substance: BUSULFAN
  3. CYCLOPHOSPHAMIDE [Concomitant]
     Active Substance: CYCLOPHOSPHAMIDE

REACTIONS (7)
  - Myelosuppression [Unknown]
  - Immunodeficiency [Unknown]
  - Agranulocytosis [Unknown]
  - Hyperpyrexia [Recovering/Resolving]
  - Bacteraemia [Unknown]
  - Blood potassium decreased [Recovering/Resolving]
  - Chills [Unknown]

NARRATIVE: CASE EVENT DATE: 20240101
